FAERS Safety Report 17601861 (Version 1)
Quarter: 2020Q1

REPORT INFORMATION
  Report Type: Spontaneous
  Country: GB (occurrence: CN)
  Receive Date: 20200331
  Receipt Date: 20200331
  Transmission Date: 20200409
  Serious: Yes (Other)
  Sender: FDA-Public Use
  Company Number: CN-ASTELLAS-2020US010920

PATIENT
  Age: 62 Year
  Sex: Male

DRUGS (5)
  1. TARCEVA [Suspect]
     Active Substance: ERLOTINIB HYDROCHLORIDE
     Dosage: 150 MG, ONCE DAILY(SECOND LINE TREATMENT)
     Route: 048
     Dates: start: 2018
  2. APREPITANT. [Concomitant]
     Active Substance: APREPITANT
     Route: 065
  3. AVASTIN [Suspect]
     Active Substance: BEVACIZUMAB
     Indication: LUNG ADENOCARCINOMA
     Dosage: 0.6 G, UNKNOWN FREQ.
     Route: 042
     Dates: start: 2018
  4. TARCEVA [Suspect]
     Active Substance: ERLOTINIB HYDROCHLORIDE
     Indication: LUNG ADENOCARCINOMA
     Dosage: 150 MG, ONCE DAILY (FIRST LINE TREATMENT)
     Route: 048
     Dates: start: 2018
  5. APREPITANT. [Concomitant]
     Active Substance: APREPITANT
     Indication: LUNG ADENOCARCINOMA
     Route: 065
     Dates: start: 2018

REACTIONS (4)
  - Pleural effusion [Unknown]
  - Diarrhoea [Unknown]
  - Pericardial effusion [Unknown]
  - Rash [Recovering/Resolving]

NARRATIVE: CASE EVENT DATE: 2018
